FAERS Safety Report 9745070 (Version 1)
Quarter: 2013Q4

REPORT INFORMATION
  Report Type: Report from Study
  Country: CA (occurrence: CA)
  Receive Date: 20131211
  Receipt Date: 20131211
  Transmission Date: 20140711
  Serious: Yes (Other)
  Sender: FDA-Public Use
  Company Number: CA-JNJFOC-20131117007

PATIENT
  Age: 54 Year
  Sex: Male
  Weight: 90.2 kg

DRUGS (8)
  1. REMICADE [Suspect]
     Indication: CROHN^S DISEASE
     Route: 042
     Dates: start: 20091209, end: 2013
  2. REMICADE [Suspect]
     Indication: CROHN^S DISEASE
     Route: 042
     Dates: start: 201309
  3. METHOTREXATE [Concomitant]
     Route: 065
  4. IMURAN [Concomitant]
     Route: 065
  5. ZIRTEC [Concomitant]
     Route: 065
  6. ENTOCORT [Concomitant]
     Route: 065
  7. LOPERAMIDE [Concomitant]
     Route: 065
  8. RATIO EMTEC [Concomitant]
     Indication: PAIN
     Route: 065

REACTIONS (3)
  - Eye infection [Recovering/Resolving]
  - Corneal degeneration [Unknown]
  - Crohn^s disease [Unknown]
